FAERS Safety Report 8388762-2 (Version None)
Quarter: 2012Q2

REPORT INFORMATION
  Report Type: 
  Country: None (occurrence: None)
  Receive Date: 20120528
  Receipt Date: 20120514
  Transmission Date: 20120825
  Serious: Yes (Life-Threatening, Hospitalization)
  Sender: FDA-Public Use
  Company Number: GR-BRISTOL-MYERS SQUIBB COMPANY-16575458

PATIENT
  Age: 71 Year
  Sex: Female

DRUGS (4)
  1. FUROSEMIDE [Concomitant]
  2. METFORMIN HCL [Suspect]
     Indication: TYPE 2 DIABETES MELLITUS
  3. OLMESARTAN MEDOXOMIL [Concomitant]
  4. GLIMEPIRIDE [Concomitant]

REACTIONS (5)
  - RENAL FAILURE ACUTE [None]
  - RESPIRATORY ARREST [None]
  - DIARRHOEA [None]
  - LACTIC ACIDOSIS [None]
  - ABSCESS NECK [None]
